FAERS Safety Report 6600682-X (Version None)
Quarter: 2010Q1

REPORT INFORMATION
  Report Type: 
  Country: None (occurrence: None)
  Receive Date: 20100223
  Receipt Date: 20100223
  Transmission Date: 20100710
  Serious: Yes (Other)
  Sender: FDA-Public Use
  Company Number: None

PATIENT
  Age: 48 Year
  Sex: Female
  Weight: 63.5036 kg

DRUGS (1)
  1. EQUATE EYE DROPS LOT 09180, EXP 05/12 [Suspect]
     Indication: EYE PAIN
     Dosage: 2 DROPS
     Dates: start: 20100119, end: 20100219

REACTIONS (5)
  - DRUG INEFFECTIVE [None]
  - ERYTHEMA OF EYELID [None]
  - EYE IRRITATION [None]
  - EYE PAIN [None]
  - OCULAR HYPERAEMIA [None]
